FAERS Safety Report 8644628 (Version 4)
Quarter: 2014Q2

REPORT INFORMATION
  Report Type: Spontaneous
  Country: US (occurrence: US)
  Receive Date: 20120630
  Receipt Date: 20140401
  Transmission Date: 20141212
  Serious: Yes (Hospitalization, Other)
  Sender: FDA-Public Use
  Company Number: US-ASTRAZENECA-2012SE34629

PATIENT
  Age: 52 Year
  Sex: Male

DRUGS (23)
  1. NEXIUM [Suspect]
     Indication: GASTROOESOPHAGEAL REFLUX DISEASE
     Dosage: ONE PER DAY
     Route: 048
  2. NEXIUM [Suspect]
     Indication: GASTROOESOPHAGEAL REFLUX DISEASE
     Route: 048
     Dates: start: 200402, end: 200803
  3. NEXIUM [Suspect]
     Indication: GASTROOESOPHAGEAL REFLUX DISEASE
     Route: 048
     Dates: start: 20050326
  4. NAPROXEN-ALEVE [Concomitant]
     Dates: start: 20050503
  5. DILANTIN [Concomitant]
     Indication: CONVULSION
     Dates: start: 20050418
  6. DILANTIN [Concomitant]
     Indication: CONVULSION
  7. METOPROLOL/METOPROLOL SUCC [Concomitant]
     Indication: HYPERTENSION
     Dates: start: 20101028
  8. METOPROLOL/METOPROLOL SUCC [Concomitant]
     Indication: HYPERTENSION
  9. STOOL SOFTENER [Concomitant]
  10. CARAFATE [Concomitant]
     Dosage: 1MG/10ML
     Dates: start: 20050503
  11. PROMETHAZINE [Concomitant]
     Dates: start: 20060605
  12. CIPROFLOXACIN HCL [Concomitant]
     Dates: start: 20061122
  13. AZITHROMYCIN [Concomitant]
     Dates: start: 20070730
  14. IBUPROFEN [Concomitant]
     Dates: start: 20070730
  15. CEPHALEXIN [Concomitant]
     Dates: start: 20101022
  16. CYCLOBENZAPRINE [Concomitant]
     Dates: start: 20101218
  17. TRAMADOL HCL [Concomitant]
     Dates: start: 20101227
  18. METHOCARBAMOL [Concomitant]
     Dates: start: 20101227
  19. MELOXICAM [Concomitant]
     Dates: start: 20101227
  20. TAMSULOSIN HCL [Concomitant]
     Dates: start: 20110127
  21. FIBER [Concomitant]
  22. PILLS [Concomitant]
  23. VITAMINS [Concomitant]

REACTIONS (8)
  - Hip fracture [Unknown]
  - Convulsion [Unknown]
  - Influenza [Unknown]
  - Anorectal disorder [Unknown]
  - Adverse event [Unknown]
  - Osteoporosis [Unknown]
  - Multiple fractures [Unknown]
  - Bone disorder [Unknown]
